FAERS Safety Report 8017426-X (Version None)
Quarter: 2012Q1

REPORT INFORMATION
  Report Type: 
  Country: None (occurrence: None)
  Receive Date: 20120102
  Receipt Date: 20111216
  Transmission Date: 20120608
  Serious: Yes (Other)
  Sender: FDA-Public Use
  Company Number: PHHY2011JP107826

PATIENT
  Age: 57 Year
  Sex: Female
  Weight: 57 kg

DRUGS (7)
  1. ADALAT [Concomitant]
  2. FEMARA [Suspect]
     Dosage: 2.5 MG, DAILY
     Route: 048
     Dates: start: 20110228
  3. HERCEPTIN [Suspect]
     Dosage: 228 MG, UNK
     Route: 065
     Dates: start: 20100906, end: 20101227
  4. HERCEPTIN [Suspect]
     Dosage: 342 MG, UNK
     Route: 065
     Dates: start: 20110117, end: 20110912
  5. TAXOL [Concomitant]
  6. FEMARA [Suspect]
     Indication: BREAST CANCER
     Dosage: 2.5 MG,DAILY
     Route: 048
     Dates: start: 20110118, end: 20110125
  7. LANSOPRAZOLE [Concomitant]

REACTIONS (7)
  - ERYTHEMA [None]
  - PYREXIA [None]
  - RADIATION SKIN INJURY [None]
  - PRURITUS [None]
  - TOXIC SKIN ERUPTION [None]
  - RASH ERYTHEMATOUS [None]
  - SKIN HYPERTROPHY [None]
